FAERS Safety Report 6261315-8 (Version None)
Quarter: 2009Q3

REPORT INFORMATION
  Report Type: 
  Country: None (occurrence: None)
  Receive Date: 20090709
  Receipt Date: 20090504
  Transmission Date: 20100115
  Serious: No
  Sender: FDA-Public Use
  Company Number: US-KINGPHARMUSA00001-K200900538

PATIENT
  Sex: Female
  Weight: 47.619 kg

DRUGS (2)
  1. LEVOXYL [Suspect]
     Indication: HYPOTHYROIDISM
     Dosage: 100 MCG, QD
     Route: 048
     Dates: start: 20090218
  2. VITAMINS [Concomitant]
     Dosage: UNK

REACTIONS (6)
  - DIZZINESS [None]
  - FATIGUE [None]
  - HAEMATOCRIT INCREASED [None]
  - HAEMOGLOBIN INCREASED [None]
  - HEART RATE INCREASED [None]
  - MALAISE [None]
